FAERS Safety Report 6505889-8 (Version None)
Quarter: 2009Q4

REPORT INFORMATION
  Report Type: 
  Country: None (occurrence: None)
  Receive Date: 20091218
  Receipt Date: 20091209
  Transmission Date: 20100525
  Serious: Yes (Hospitalization)
  Sender: FDA-Public Use
  Company Number: KR-PFIZER INC-2009299761

PATIENT
  Age: 16 Year
  Sex: Female

DRUGS (1)
  1. METHYLPREDNISOLONE AND METHYLPREDNISOLONE ACETATE AND METHYLPREDNISOLO [Suspect]
     Indication: OPTIC NEURITIS
     Dosage: UNK
     Route: 042

REACTIONS (1)
  - NEUROMYELITIS OPTICA [None]
